FAERS Safety Report 15247323 (Version 2)
Quarter: 2020Q4

REPORT INFORMATION
  Report Type: Report from Study
  Country: US (occurrence: US)
  Receive Date: 20180807
  Receipt Date: 20201123
  Transmission Date: 20210113
  Serious: No
  Sender: FDA-Public Use
  Company Number: US-AMGEN-USASP2018105011

PATIENT
  Age: 75 Year
  Sex: Female

DRUGS (5)
  1. ENBREL [Suspect]
     Active Substance: ETANERCEPT
     Indication: RHEUMATOID ARTHRITIS
     Dosage: 50 MILLIGRAM, QWK
     Route: 065
     Dates: start: 2000
  2. RECLAST [Concomitant]
     Active Substance: ZOLEDRONIC ACID
     Indication: BONE LOSS
     Dosage: UNK UNK, QMO
     Route: 065
     Dates: start: 2000
  3. FOLIC ACID. [Concomitant]
     Active Substance: FOLIC ACID
     Dosage: UNK
  4. VITAMIN C [Concomitant]
     Active Substance: ASCORBIC ACID
     Dosage: UNK
  5. ENBREL [Suspect]
     Active Substance: ETANERCEPT
     Dosage: 50 MILLIGRAM, QWK
     Route: 065

REACTIONS (3)
  - Diarrhoea [Unknown]
  - Rosacea [Unknown]
  - Arthralgia [Unknown]

NARRATIVE: CASE EVENT DATE: 201807
